FAERS Safety Report 17551420 (Version 1)
Quarter: 2020Q1

REPORT INFORMATION
  Report Type: Spontaneous
  Country: CA (occurrence: CA)
  Receive Date: 20200317
  Receipt Date: 20200317
  Transmission Date: 20200409
  Serious: Yes (Death, Other)
  Sender: FDA-Public Use
  Company Number: NVSC2020CA071891

PATIENT
  Age: 72 Year
  Sex: Female
  Weight: 47 kg

DRUGS (9)
  1. CALCIUM [Concomitant]
     Active Substance: CALCIUM
     Indication: PRODUCT USED FOR UNKNOWN INDICATION
     Dosage: UNK
     Route: 065
  2. LASIX [Concomitant]
     Active Substance: FUROSEMIDE
     Indication: PRODUCT USED FOR UNKNOWN INDICATION
     Dosage: UNK
     Route: 065
  3. SUTENT [Suspect]
     Active Substance: SUNITINIB MALATE
     Indication: PRODUCT USED FOR UNKNOWN INDICATION
     Dosage: 12.5 MG, QD
     Route: 065
  4. AFINITOR [Suspect]
     Active Substance: EVEROLIMUS
     Indication: PANCREATIC NEUROENDOCRINE TUMOUR
     Dosage: 10 MG, QD
     Route: 048
  5. SANDOSTATIN [Suspect]
     Active Substance: OCTREOTIDE ACETATE
     Indication: NEUROENDOCRINE TUMOUR
     Dosage: 30.0 MG, QMO
     Route: 030
  6. SUTENT [Suspect]
     Active Substance: SUNITINIB MALATE
     Dosage: 25 MG, QD
     Route: 065
  7. METOPROLOL. [Suspect]
     Active Substance: METOPROLOL
     Indication: PRODUCT USED FOR UNKNOWN INDICATION
     Dosage: UNK
     Route: 065
  8. SUNITINIB [Suspect]
     Active Substance: SUNITINIB
     Indication: PRODUCT USED FOR UNKNOWN INDICATION
     Dosage: UNK
     Route: 065
  9. SPIRONOLACTON [Concomitant]
     Active Substance: SPIRONOLACTONE
     Indication: PRODUCT USED FOR UNKNOWN INDICATION
     Dosage: UNK
     Route: 065

REACTIONS (43)
  - Blood pressure systolic increased [Unknown]
  - Bursitis [Unknown]
  - Depression [Unknown]
  - Pruritus [Unknown]
  - Malaise [Unknown]
  - Scar [Unknown]
  - Abdominal pain [Unknown]
  - Neoplasm progression [Unknown]
  - Pain in extremity [Unknown]
  - Second primary malignancy [Unknown]
  - Vomiting [Unknown]
  - Death [Fatal]
  - Asthenia [Unknown]
  - Inappropriate schedule of product administration [Unknown]
  - Myalgia [Unknown]
  - Nausea [Unknown]
  - Palpitations [Unknown]
  - Rash [Unknown]
  - Dermatitis [Unknown]
  - Diarrhoea [Unknown]
  - Fatigue [Unknown]
  - Pain of skin [Unknown]
  - Peripheral swelling [Unknown]
  - Sciatica [Unknown]
  - Gastrointestinal pain [Unknown]
  - Heart rate decreased [Unknown]
  - Inflammation [Unknown]
  - Joint swelling [Unknown]
  - Drug intolerance [Unknown]
  - Malignant neoplasm progression [Unknown]
  - Back pain [Unknown]
  - Fall [Unknown]
  - Pain [Unknown]
  - Body temperature decreased [Unknown]
  - Eating disorder [Unknown]
  - Epistaxis [Unknown]
  - Hepatic neoplasm [Unknown]
  - Hypotension [Unknown]
  - Lethargy [Unknown]
  - Musculoskeletal pain [Unknown]
  - Spinal stenosis [Unknown]
  - Toxicity to various agents [Unknown]
  - Weight decreased [Unknown]
